FAERS Safety Report 8854620 (Version 1)
Quarter: 2012Q4

REPORT INFORMATION
  Report Type: 
  Country: US (occurrence: US)
  Receive Date: 20121023
  Receipt Date: 20121023
  Transmission Date: 20130627
  Serious: Yes (Other)
  Sender: FDA-Public Use
  Company Number: US-BAYER-2012-108767

PATIENT

DRUGS (3)
  1. ALEVE CAPLET/TABLET,MIDOL EXTENDED RELIEF CAPLET [Suspect]
  2. UNKNOWN [Concomitant]
  3. UNKNOWN [Concomitant]

REACTIONS (3)
  - Renal impairment [None]
  - Muscular weakness [None]
  - Anaemia [None]
